FAERS Safety Report 4638512-8 (Version None)
Quarter: 2005Q2

REPORT INFORMATION
  Report Type: 
  Country: None (occurrence: None)
  Receive Date: 20050418
  Receipt Date: 20050404
  Transmission Date: 20051028
  Serious: Yes (Hospitalization)
  Sender: FDA-Public Use
  Company Number: 2005055598

PATIENT
  Sex: Male

DRUGS (2)
  1. ARTHROTEC [Suspect]
     Indication: OSTEOARTHRITIS
     Dosage: 1 IN 1 D, ORAL
     Route: 048
  2. ASCORBIC ACID [Suspect]
     Indication: ILL-DEFINED DISORDER
     Dosage: 225 MG / 400 MG

REACTIONS (1)
  - ANAPHYLACTIC SHOCK [None]
